FAERS Safety Report 6726242-8 (Version None)
Quarter: 2010Q2

REPORT INFORMATION
  Report Type: 
  Country: None (occurrence: None)
  Receive Date: 20100514
  Receipt Date: 20100502
  Transmission Date: 20101027
  Serious: Yes (Other)
  Sender: FDA-Public Use
  Company Number: SY-ELI_LILLY_AND_COMPANY-SY201002005858

PATIENT
  Sex: Female

DRUGS (3)
  1. HUMALOG [Suspect]
     Indication: DIABETES MELLITUS
     Dosage: UNK UNK, 2/D
     Route: 058
     Dates: start: 20090710, end: 20100218
  2. LANTUS [Concomitant]
     Indication: DIABETES MELLITUS
     Dosage: UNK UNK, 2/D
     Route: 058
     Dates: start: 20090710, end: 20100219
  3. CALCIUM [Concomitant]
     Dosage: UNK, UNKNOWN
     Route: 065

REACTIONS (4)
  - DRUG EXPOSURE DURING PREGNANCY [None]
  - DRUG EXPOSURE VIA BREAST MILK [None]
  - GAIT DISTURBANCE [None]
  - PAIN IN EXTREMITY [None]
